FAERS Safety Report 5253915-9 (Version None)
Quarter: 2007Q1

REPORT INFORMATION
  Report Type: 
  Country: None (occurrence: None)
  Receive Date: 20070228
  Receipt Date: 20070228
  Transmission Date: 20070707
  Serious: Yes (Other)
  Sender: FDA-Public Use
  Company Number: None

PATIENT
  Age: 40 Year
  Sex: Male
  Weight: 127.0072 kg

DRUGS (1)
  1. ANCEF [Suspect]
     Indication: PREOPERATIVE CARE
     Dosage: 1 GRAM IVPB
     Route: 042
     Dates: start: 20061211, end: 20061213

REACTIONS (2)
  - BLOOD PRESSURE DECREASED [None]
  - DIZZINESS [None]
